FAERS Safety Report 5095973-0 (Version None)
Quarter: 2006Q3

REPORT INFORMATION
  Report Type: 
  Country: None (occurrence: None)
  Receive Date: 20060905
  Receipt Date: 20060830
  Transmission Date: 20061208
  Serious: Yes (Hospitalization)
  Sender: FDA-Public Use
  Company Number: US-GLAXOSMITHKLINE-A0618620A

PATIENT
  Age: 72 Year
  Sex: Male

DRUGS (12)
  1. AVANDIA [Suspect]
     Dosage: 4MG PER DAY
     Route: 048
     Dates: end: 20060801
  2. AVANDARYL [Suspect]
     Dosage: 1TAB TWICE PER DAY
     Route: 048
     Dates: start: 20060824
  3. AVELOX [Suspect]
     Route: 048
     Dates: start: 20060401, end: 20060501
  4. CORICIDIN [Suspect]
     Indication: DRUG USE FOR UNKNOWN INDICATION
     Dates: start: 20060501
  5. VANCOMYCIN [Concomitant]
     Route: 048
  6. LORAZEPAM [Concomitant]
  7. PROMETHAZINE [Concomitant]
  8. FLOMAX [Concomitant]
  9. METOPROLOL TARTRATE [Concomitant]
  10. COUMADIN [Concomitant]
  11. SACCHAROMYCES BOULARDII [Concomitant]
  12. INSULIN [Concomitant]

REACTIONS (12)
  - CARDIAC DISORDER [None]
  - CLOSTRIDIAL INFECTION [None]
  - CYSTITIS [None]
  - DIARRHOEA [None]
  - DRUG INTERACTION [None]
  - HEART RATE INCREASED [None]
  - HYPERHIDROSIS [None]
  - HYPERSENSITIVITY [None]
  - PNEUMONIA [None]
  - PYREXIA [None]
  - RASH GENERALISED [None]
  - SINUSITIS [None]
